FAERS Safety Report 6525983-5 (Version None)
Quarter: 2010Q1

REPORT INFORMATION
  Report Type: 
  Country: None (occurrence: None)
  Receive Date: 20100104
  Receipt Date: 20091224
  Transmission Date: 20100710
  Serious: Yes (Other)
  Sender: FDA-Public Use
  Company Number: US-JNJCH-2009033104

PATIENT
  Age: 81 Year
  Sex: Male
  Weight: 61.2 kg

DRUGS (5)
  1. LISTERINE ANTISEPTIC MOUTHWASH [Suspect]
     Indication: DENTAL DISORDER PROPHYLAXIS
     Dosage: TEXT:LESS THAN A CAPFUL TWICE DAILY
     Route: 048
  2. PRILOSEC [Concomitant]
     Indication: ABDOMINAL DISCOMFORT
     Dosage: TEXT:ONE DAILY
     Route: 065
  3. FLOMAX [Concomitant]
     Indication: URINARY TRACT DISORDER
     Dosage: TEXT:ONE DAILY
     Route: 065
  4. FLORINEF [Concomitant]
     Indication: HYPOTENSION
     Dosage: TEXT:ONE DAILY
     Route: 065
  5. ALL OTHER THERAPEUTIC PRODUCTS [Concomitant]
     Indication: URINARY TRACT DISORDER
     Dosage: TEXT:ONE DAILY
     Route: 065

REACTIONS (2)
  - GINGIVAL DISCOLOURATION [None]
  - TOOTH DISCOLOURATION [None]
